FAERS Safety Report 23225690 (Version 1)
Quarter: 2023Q4

REPORT INFORMATION
  Report Type: Spontaneous
  Country: IT (occurrence: IT)
  Receive Date: 20231124
  Receipt Date: 20231124
  Transmission Date: 20240109
  Serious: Yes (Death)
  Sender: FDA-Public Use
  Company Number: None

PATIENT
  Age: 75 Year
  Sex: Male

DRUGS (1)
  1. LIBTAYO [Suspect]
     Active Substance: CEMIPLIMAB-RWLC
     Indication: Squamous cell carcinoma of skin
     Dosage: 350 MG OGNI 3 SETTIMANE
     Route: 042
     Dates: start: 20210519, end: 20210609

REACTIONS (1)
  - Pemphigoid [Fatal]

NARRATIVE: CASE EVENT DATE: 20210701
